FAERS Safety Report 23688770 (Version 4)
Quarter: 2024Q3

REPORT INFORMATION
  Report Type: Spontaneous
  Country: JP (occurrence: JP)
  Receive Date: 20240329
  Receipt Date: 20240923
  Transmission Date: 20241017
  Serious: Yes (Death, Life-Threatening, Hospitalization, Other)
  Sender: BRISTOL MYERS SQUIBB
  Company Number: JP-ONO-2024JP006612

PATIENT
  Age: 75 Year
  Sex: Male
  Weight: 64 kg

DRUGS (5)
  1. OPDIVO [Suspect]
     Active Substance: NIVOLUMAB
     Indication: Transitional cell carcinoma
     Dosage: 240 MG, Q2W
     Route: 041
     Dates: start: 20231114, end: 20231212
  2. OPDIVO [Suspect]
     Active Substance: NIVOLUMAB
     Dosage: 480 MG, Q4W
     Route: 041
     Dates: start: 20231228, end: 20240123
  3. MAGNESIUM OXIDE [Concomitant]
     Active Substance: MAGNESIUM OXIDE
     Indication: Product used for unknown indication
     Dosage: 330 MG, Q8H
     Route: 048
     Dates: start: 20230919, end: 20240220
  4. LORMETAZEPAM [Concomitant]
     Active Substance: LORMETAZEPAM
     Indication: Product used for unknown indication
     Dosage: 1 MG, EVERYDAY
     Route: 048
     Dates: start: 20230919, end: 20240220
  5. ETIZOLAM [Concomitant]
     Active Substance: ETIZOLAM
     Indication: Product used for unknown indication
     Dosage: 0.5 MG, EVERYDAY
     Route: 048
     Dates: start: 20230919, end: 20240220

REACTIONS (4)
  - Myocarditis [Fatal]
  - Renal impairment [Unknown]
  - Hepatic function abnormal [Unknown]
  - Myositis [Fatal]

NARRATIVE: CASE EVENT DATE: 20240220
